FAERS Safety Report 9330534 (Version 1)
Quarter: 2013Q2

REPORT INFORMATION
  Report Type: Spontaneous
  Country: US (occurrence: None)
  Receive Date: 20130604
  Receipt Date: 20130604
  Transmission Date: 20140414
  Serious: Yes (Death)
  Sender: FDA-Public Use
  Company Number: None

PATIENT
  Age: 81 Year
  Sex: Female
  Weight: 87.1 kg

DRUGS (2)
  1. PROTAMINE [Suspect]
     Indication: TOXICITY TO VARIOUS AGENTS
     Route: 040
  2. PROTAMINE [Suspect]
     Indication: HAEMORRHAGE
     Route: 040

REACTIONS (3)
  - Hypotension [None]
  - Bradycardia [None]
  - Cardiac arrest [None]
